FAERS Safety Report 12483451 (Version 6)
Quarter: 2019Q4

REPORT INFORMATION
  Report Type: Report from Study
  Country: US (occurrence: US)
  Receive Date: 20160621
  Receipt Date: 20191126
  Transmission Date: 20200122
  Serious: Yes (Other)
  Sender: FDA-Public Use
  Company Number: PHHY2016US082718

PATIENT
  Age: 46 Year
  Sex: Female

DRUGS (1)
  1. GILENYA [Suspect]
     Active Substance: FINGOLIMOD HYDROCHLORIDE
     Indication: MULTIPLE SCLEROSIS
     Dosage: UNK, QD
     Route: 048

REACTIONS (14)
  - Blood pressure increased [Recovered/Resolved]
  - Arthralgia [Unknown]
  - Back pain [Unknown]
  - Dizziness [Unknown]
  - Tinnitus [Unknown]
  - Hypoaesthesia [Unknown]
  - Neurogenic bladder [Unknown]
  - Dizziness postural [Recovered/Resolved]
  - Nausea [Recovered/Resolved]
  - Balance disorder [Unknown]
  - Memory impairment [Unknown]
  - Carpal tunnel syndrome [Unknown]
  - Tendonitis [Recovered/Resolved]
  - Fall [Unknown]

NARRATIVE: CASE EVENT DATE: 20151020
